FAERS Safety Report 4383693-7 (Version None)
Quarter: 2004Q2

REPORT INFORMATION
  Report Type: 
  Country: None (occurrence: None)
  Receive Date: 20040618
  Receipt Date: 20040607
  Transmission Date: 20050107
  Serious: Yes (Death, Hospitalization)
  Sender: FDA-Public Use
  Company Number: USA-2004-0015471

PATIENT
  Age: 43 Year
  Sex: Female

DRUGS (1)
  1. OXYCONTIN [Suspect]
     Indication: PAIN

REACTIONS (4)
  - ASPIRATION [None]
  - COMA [None]
  - OVERDOSE [None]
  - VOMITING [None]
